FAERS Safety Report 7221423-1 (Version None)
Quarter: 2010Q4

REPORT INFORMATION
  Report Type: 
  Country: None (occurrence: None)
  Receive Date: 20101227
  Receipt Date: 20101217
  Transmission Date: 20110411
  Serious: Yes (Other)
  Sender: FDA-Public Use
  Company Number: 2010027193

PATIENT
  Sex: Female

DRUGS (1)
  1. VIVAGLOBIN [Suspect]
     Indication: IMMUNOGLOBULINS DECREASED
     Dosage: SUBCUTANEOUS
     Route: 058
     Dates: start: 20100801

REACTIONS (5)
  - ADVERSE EVENT [None]
  - INFUSION SITE SWELLING [None]
  - LOSS OF CONSCIOUSNESS [None]
  - MALAISE [None]
  - SUICIDAL IDEATION [None]
